FAERS Safety Report 26074377 (Version 1)
Quarter: 2025Q4

REPORT INFORMATION
  Report Type: Spontaneous
  Country: GB (occurrence: GB)
  Receive Date: 20251121
  Receipt Date: 20251121
  Transmission Date: 20260118
  Serious: Yes (Hospitalization)
  Sender: REGENERON
  Company Number: GB-REGENERON PHARMACEUTICALS, INC.-2025-183018

PATIENT
  Sex: Male

DRUGS (1)
  1. CEMIPLIMAB [Suspect]
     Active Substance: CEMIPLIMAB
     Indication: Metastatic squamous cell carcinoma
     Dosage: UNK

REACTIONS (1)
  - Erythrodermic psoriasis [Unknown]
